FAERS Safety Report 12784339 (Version 1)
Quarter: 2016Q3

REPORT INFORMATION
  Report Type: Spontaneous
  Country: GB (occurrence: GB)
  Receive Date: 20160927
  Receipt Date: 20160927
  Transmission Date: 20161109
  Serious: Yes (Other)
  Sender: FDA-Public Use
  Company Number: GB-BEH-SAGL/02/03/LIT

PATIENT
  Age: 40 Year
  Sex: Female

DRUGS (4)
  1. AZATHIOPRINE. [Concomitant]
     Active Substance: AZATHIOPRINE
  2. PREDNISOLONE. [Concomitant]
     Active Substance: PREDNISOLONE
  3. SANDOGLOBULIN [Suspect]
     Active Substance: HUMAN IMMUNOGLOBULIN G
     Indication: CHRONIC INFLAMMATORY DEMYELINATING POLYRADICULONEUROPATHY
     Dosage: DAILY DOSE QUANTITY: 400, DAILY DOSE UNIT: MG/KG
     Route: 042
  4. SANDOGLOBULIN [Suspect]
     Active Substance: HUMAN IMMUNOGLOBULIN G
     Dosage: DAILY DOSE QUANTITY: 400, DAILY DOSE UNIT: MG/KG

REACTIONS (4)
  - Hypercholesterolaemia [Unknown]
  - Blindness [Unknown]
  - Visual field defect [Unknown]
  - Retinal vein occlusion [Recovered/Resolved]
